FAERS Safety Report 5711491-8 (Version None)
Quarter: 2008Q2

REPORT INFORMATION
  Report Type: 
  Country: None (occurrence: None)
  Receive Date: 20080421
  Receipt Date: 20080411
  Transmission Date: 20081010
  Serious: Yes (Hospitalization)
  Sender: FDA-Public Use
  Company Number: US-MERCK-0705USA02851

PATIENT
  Age: 67 Year
  Sex: Female

DRUGS (4)
  1. FOSAMAX [Suspect]
     Indication: OSTEOPOROSIS
     Route: 048
     Dates: start: 20020101, end: 20050101
  2. THYROXIN [Concomitant]
     Indication: THYROID DISORDER
     Route: 065
     Dates: start: 19880101
  3. LASIX [Concomitant]
     Indication: FLUID RETENTION
     Route: 065
     Dates: start: 19980101
  4. [THERAPY UNSPECIFIED] [Concomitant]
     Indication: RHEUMATOID ARTHRITIS
     Route: 065
     Dates: start: 19980101

REACTIONS (14)
  - ABSCESS [None]
  - ANXIETY [None]
  - ARTHROPATHY [None]
  - DENTAL CARIES [None]
  - DEPRESSION [None]
  - EDENTULOUS [None]
  - GINGIVAL DISORDER [None]
  - HYPERTENSION [None]
  - OEDEMA MOUTH [None]
  - ORAL INFECTION [None]
  - ORAL PAIN [None]
  - PARAESTHESIA [None]
  - ROTATOR CUFF SYNDROME [None]
  - TOOTH LOSS [None]
